FAERS Safety Report 17532095 (Version 1)
Quarter: 2020Q1

REPORT INFORMATION
  Report Type: Spontaneous
  Country: US (occurrence: US)
  Receive Date: 20200311
  Receipt Date: 20200311
  Transmission Date: 20200409
  Serious: No
  Sender: FDA-Public Use
  Company Number: US-BAUSCH-BL-2020-007761

PATIENT
  Age: 28 Year
  Sex: Male

DRUGS (4)
  1. BESIVANCE [Suspect]
     Active Substance: BESIFLOXACIN
     Indication: PRODUCT USE IN UNAPPROVED INDICATION
  2. PROLENSA [Concomitant]
     Active Substance: BROMFENAC SODIUM
     Indication: PRODUCT USED FOR UNKNOWN INDICATION
     Route: 047
  3. VALTREX [Concomitant]
     Active Substance: VALACYCLOVIR HYDROCHLORIDE
     Indication: PRODUCT USED FOR UNKNOWN INDICATION
     Route: 048
  4. BESIVANCE [Suspect]
     Active Substance: BESIFLOXACIN
     Indication: POSTOPERATIVE CARE
     Dosage: 3 DROPS DAILY IN LEFT EYE FOR 1 WEEK THEN 3 DROPS DAILY INTO THE RIGHT EYE FOR 1 WEEK
     Route: 047
     Dates: start: 20200226, end: 20200304

REACTIONS (4)
  - Therapy cessation [Unknown]
  - Product use in unapproved indication [Unknown]
  - Product dose omission [Unknown]
  - Liquid product physical issue [Unknown]

NARRATIVE: CASE EVENT DATE: 2020
